FAERS Safety Report 13947519 (Version 2)
Quarter: 2018Q4

REPORT INFORMATION
  Report Type: Spontaneous
  Country: US (occurrence: US)
  Receive Date: 20170908
  Receipt Date: 20181011
  Transmission Date: 20190204
  Serious: No
  Sender: FDA-Public Use
  Company Number: US-ASTRAZENECA-2017SE91121

PATIENT
  Age: 936 Month
  Sex: Male
  Weight: 104.3 kg

DRUGS (2)
  1. DULERA [Concomitant]
     Active Substance: FORMOTEROL FUMARATE DIHYDRATE\MOMETASONE FUROATE
     Indication: CHRONIC OBSTRUCTIVE PULMONARY DISEASE
     Dosage: 200/5 MICROGRAM, 2 INHALATIONS, TWICE A DAY
     Route: 055
  2. TUDORZA PRESSAIR [Suspect]
     Active Substance: ACLIDINIUM BROMIDE
     Indication: CHRONIC OBSTRUCTIVE PULMONARY DISEASE
     Route: 055

REACTIONS (5)
  - Hereditary neuropathy with liability to pressure palsies [Not Recovered/Not Resolved]
  - Product dose omission [Not Recovered/Not Resolved]
  - Device malfunction [Unknown]
  - Circumstance or information capable of leading to medication error [Not Recovered/Not Resolved]
  - Intentional product misuse [Not Recovered/Not Resolved]

NARRATIVE: CASE EVENT DATE: 201708
